FAERS Safety Report 6965768-9 (Version None)
Quarter: 2010Q3

REPORT INFORMATION
  Report Type: 
  Country: None (occurrence: None)
  Receive Date: 20100903
  Receipt Date: 20100903
  Transmission Date: 20110219
  Serious: Yes (Hospitalization)
  Sender: FDA-Public Use
  Company Number: FR-MILLENNIUM PHARMACEUTICALS, INC.-2010-01405

PATIENT

DRUGS (2)
  1. VELCADE [Suspect]
     Indication: MULTIPLE MYELOMA
     Dosage: 1.25 MG/M2, UNK
     Route: 042
     Dates: start: 20091104, end: 20091114
  2. DEXAMETHASONE [Concomitant]
     Dosage: UNK
     Dates: start: 20091029

REACTIONS (2)
  - OESOPHAGITIS [None]
  - ORAL MUCOSAL EXFOLIATION [None]
